FAERS Safety Report 4630284-6 (Version None)
Quarter: 2005Q2

REPORT INFORMATION
  Report Type: 
  Country: None (occurrence: None)
  Receive Date: 20050407
  Receipt Date: 20050325
  Transmission Date: 20051028
  Serious: Yes (Other)
  Sender: FDA-Public Use
  Company Number: 03-000518

PATIENT
  Age: 57 Year
  Sex: Female

DRUGS (6)
  1. MANDELAMINE (METHENAMINE MANDELATE) TABLET, 1G [Suspect]
     Indication: PROPHYLAXIS
     Dosage: SEE IMAGE
     Dates: start: 19980101, end: 20040101
  2. MANDELAMINE (METHENAMINE MANDELATE) TABLET, 1G [Suspect]
     Indication: URINARY TRACT INFECTION
     Dosage: SEE IMAGE
     Dates: start: 19980101, end: 20040101
  3. MANDELAMINE (METHENAMINE MANDELATE) TABLET, 1G [Suspect]
     Indication: PROPHYLAXIS
     Dosage: SEE IMAGE
     Dates: start: 19980101, end: 20040101
  4. MANDELAMINE (METHENAMINE MANDELATE) TABLET, 1G [Suspect]
     Indication: URINARY TRACT INFECTION
     Dosage: SEE IMAGE
     Dates: start: 19980101, end: 20040101
  5. OGEN [Concomitant]
  6. NATURAL PROGESTERONE [Concomitant]

REACTIONS (2)
  - GASTROINTESTINAL PAIN [None]
  - PANCREATIC CYST [None]
